FAERS Safety Report 7722933-0 (Version None)
Quarter: 2011Q3

REPORT INFORMATION
  Report Type: 
  Country: None (occurrence: None)
  Receive Date: 20110826
  Receipt Date: 20110810
  Transmission Date: 20111222
  Serious: Yes (Death)
  Sender: FDA-Public Use
  Company Number: JP-2011-11278

PATIENT
  Age: 75 Year
  Sex: Male
  Weight: 41 kg

DRUGS (2)
  1. SAMSCA [Suspect]
     Indication: FLUID RETENTION
     Dosage: 15 MG MILLIGRAM(S), QD, ORAL
     Route: 048
     Dates: start: 20110717, end: 20110719
  2. DOBUTREX [Concomitant]

REACTIONS (11)
  - PERIPHERAL COLDNESS [None]
  - HYPERKALAEMIA [None]
  - BRADYCARDIA [None]
  - CONDITION AGGRAVATED [None]
  - RESPIRATORY ARREST [None]
  - RENAL FAILURE ACUTE [None]
  - BLOOD PRESSURE DECREASED [None]
  - HYPONATRAEMIA [None]
  - VENTRICULAR TACHYCARDIA [None]
  - CARDIAC ARREST [None]
  - CARDIAC FAILURE [None]
